FAERS Safety Report 5492767-9 (Version None)
Quarter: 2007Q4

REPORT INFORMATION
  Report Type: 
  Country: None (occurrence: None)
  Receive Date: 20071019
  Receipt Date: 20071016
  Transmission Date: 20080405
  Serious: Yes (Other)
  Sender: FDA-Public Use
  Company Number: SP01595

PATIENT
  Age: 27 Year
  Sex: Female

DRUGS (1)
  1. COLAZAL [Suspect]

REACTIONS (8)
  - DRY SKIN [None]
  - EYE IRRITATION [None]
  - HEADACHE [None]
  - HYPERSENSITIVITY [None]
  - IMPAIRED WORK ABILITY [None]
  - LIP SWELLING [None]
  - RESPIRATORY DISORDER [None]
  - SWOLLEN TONGUE [None]
